FAERS Safety Report 4704947-8 (Version None)
Quarter: 2005Q3

REPORT INFORMATION
  Report Type: 
  Country: None (occurrence: None)
  Receive Date: 20050701
  Receipt Date: 20050421
  Transmission Date: 20060218
  Serious: Yes (Other)
  Sender: FDA-Public Use
  Company Number: JP-BOEHRINGER INGELHEIM PHARMACEUTICALS, INC.-2005-BP-07358NB

PATIENT
  Sex: Male
  Weight: 65.3 kg

DRUGS (9)
  1. MICARDIS [Suspect]
     Indication: HYPERTENSION
     Route: 048
     Dates: start: 20050214, end: 20050419
  2. BUFFERIN [Concomitant]
     Indication: CEREBRAL INFARCTION
     Route: 048
     Dates: end: 20050309
  3. GLORIAMIN [Concomitant]
     Indication: GASTRITIS
     Route: 048
     Dates: start: 20050310
  4. KAMA (MAGNESIUM OXIDE) [Concomitant]
     Indication: CONSTIPATION
     Route: 048
     Dates: start: 20050210
  5. PURSENNID (SENNOSIDE) [Concomitant]
     Indication: CONSTIPATION
     Route: 048
     Dates: start: 20050210
  6. HALCION [Concomitant]
     Route: 048
     Dates: end: 20050322
  7. LENDEM (BROTIZOLAM) [Concomitant]
     Indication: INSOMNIA
     Route: 048
     Dates: start: 20050222
  8. ASPIRIN [Concomitant]
     Indication: CEREBRAL INFARCTION
     Route: 048
     Dates: start: 20050310
  9. MARZULENE S [Concomitant]
     Indication: GASTRITIS
     Route: 048
     Dates: end: 20050309

REACTIONS (2)
  - FALL [None]
  - SHOCK [None]
